FAERS Safety Report 8464752-6 (Version None)
Quarter: 2012Q2

REPORT INFORMATION
  Report Type: 
  Country: None (occurrence: None)
  Receive Date: 20120626
  Receipt Date: 20120620
  Transmission Date: 20120825
  Serious: No
  Sender: FDA-Public Use
  Company Number: US-PFIZER INC-2012149336

PATIENT
  Age: 74 Year
  Sex: Male

DRUGS (4)
  1. DILANTIN [Suspect]
     Indication: HEAD INJURY
     Dosage: UNK
  2. DILANTIN [Suspect]
     Dosage: UNK
  3. DILANTIN [Suspect]
     Indication: CONVULSION
     Dosage: 300 MG, UNK
  4. DILANTIN [Suspect]
     Dosage: 100 MG, UNK

REACTIONS (1)
  - PROSTATIC SPECIFIC ANTIGEN ABNORMAL [None]
